FAERS Safety Report 8047052-8 (Version None)
Quarter: 2012Q1

REPORT INFORMATION
  Report Type: 
  Country: None (occurrence: None)
  Receive Date: 20120116
  Receipt Date: 20120104
  Transmission Date: 20120608
  Serious: Yes (Death)
  Sender: FDA-Public Use
  Company Number: US-MYLANLABS-2012S1000140

PATIENT
  Age: 95 Year
  Sex: Female

DRUGS (15)
  1. FENTANYL-100 [Suspect]
     Indication: ARTHRALGIA
     Dosage: CHANGED Q72H
     Route: 062
     Dates: start: 20060501, end: 20100901
  2. FUROSEMIDE [Concomitant]
     Route: 048
  3. PRILOSEC [Concomitant]
     Route: 048
  4. CARVEDILOL [Concomitant]
     Indication: HYPERTENSION
     Route: 048
  5. FENTANYL-100 [Suspect]
     Dosage: CHANGED Q72H
     Route: 062
     Dates: start: 20100904, end: 20100906
  6. NAMENDA [Concomitant]
     Indication: DEMENTIA
     Route: 048
  7. POTASSIUM CHLORIDE [Concomitant]
     Route: 048
  8. COZAAR [Concomitant]
     Route: 048
  9. LANOXIN [Concomitant]
     Indication: CARDIAC FAILURE CONGESTIVE
     Route: 048
  10. MIRALAX /00754501/ [Concomitant]
  11. OXYGEN [Concomitant]
     Dosage: ABOUT 2 LITERS
  12. VITAMIN B-12 [Concomitant]
     Route: 030
  13. LORAZEPAM [Concomitant]
     Route: 048
  14. METFORMIN HCL [Concomitant]
     Indication: DIABETES MELLITUS
     Route: 048
  15. ACETAMINOPHEN [Concomitant]
     Indication: ARTHRALGIA
     Route: 048

REACTIONS (2)
  - RESPIRATORY DEPRESSION [None]
  - CARDIAC FAILURE CONGESTIVE [None]
